FAERS Safety Report 8028367-6 (Version None)
Quarter: 2012Q1

REPORT INFORMATION
  Report Type: 
  Country: None (occurrence: None)
  Receive Date: 20120106
  Receipt Date: 20111226
  Transmission Date: 20120608
  Serious: Yes (Hospitalization)
  Sender: FDA-Public Use
  Company Number: JP-AMGEN-QUU436703

PATIENT
  Age: 39 Year
  Sex: Female
  Weight: 57 kg

DRUGS (4)
  1. PREDNISOLONE [Concomitant]
     Dosage: 1 MG, 3 TIMES/WK
  2. METHOTREXATE [Concomitant]
     Dosage: 6 MG, QWK
  3. ETODOLAC [Concomitant]
     Dosage: 200 MG, BID
  4. ENBREL [Suspect]
     Indication: RHEUMATOID ARTHRITIS
     Dosage: 25 MG, QWK
     Route: 058
     Dates: start: 20090514, end: 20091015

REACTIONS (2)
  - OPTIC NEURITIS [None]
  - ROAD TRAFFIC ACCIDENT [None]
